FAERS Safety Report 25200632 (Version 3)
Quarter: 2025Q3

REPORT INFORMATION
  Report Type: Spontaneous
  Country: US (occurrence: US)
  Receive Date: 20250415
  Receipt Date: 20250716
  Transmission Date: 20251021
  Serious: Yes (Other)
  Sender: BAYER HEALTHCARE PHARMACEUTICALS INC.
  Company Number: US-BAYER-2025A048870

PATIENT
  Sex: Male

DRUGS (6)
  1. JIVI [Suspect]
     Active Substance: DAMOCTOCOG ALFA PEGOL
     Indication: Factor VIII deficiency
     Dosage: JIVI STRENGTH 2000; 2000 UNITS INFUSED 2 TIMES A WEEK AND AS NEEDED
     Route: 042
     Dates: start: 201502
  2. JIVI [Suspect]
     Active Substance: DAMOCTOCOG ALFA PEGOL
     Indication: Factor VIII deficiency
     Dosage: JIVI STRENGTH 500; 800 UNITS INFUSED 2 TIMES A WEEK AND AS NEEDED
     Route: 042
  3. JIVI [Suspect]
     Active Substance: DAMOCTOCOG ALFA PEGOL
     Indication: Factor VIII deficiency
     Dosage: JIVI STRENGTH 500; INFUSE 2800 UNITS (2520-3080) SLOW IV PUSH TWICE A WEEK
     Route: 042
     Dates: start: 202303
  4. JIVI [Suspect]
     Active Substance: DAMOCTOCOG ALFA PEGOL
     Indication: Factor VIII deficiency
     Dosage: JIVI STRENGTH 2000; INFUSE 2800 UNITS (2520-3080) TWICE A WEEK AND AS NEEDED
     Route: 042
     Dates: start: 202303
  5. JIVI [Suspect]
     Active Substance: DAMOCTOCOG ALFA PEGOL
     Indication: Factor VIII deficiency
     Route: 042
  6. JIVI [Suspect]
     Active Substance: DAMOCTOCOG ALFA PEGOL
     Indication: Factor VIII deficiency
     Route: 042

REACTIONS (4)
  - Haemarthrosis [None]
  - Muscle haemorrhage [None]
  - Gingival bleeding [Not Recovered/Not Resolved]
  - Haemarthrosis [Recovered/Resolved]
